FAERS Safety Report 11458967 (Version 1)
Quarter: 2015Q3

REPORT INFORMATION
  Report Type: Spontaneous
  Country: DE (occurrence: DE)
  Receive Date: 20150904
  Receipt Date: 20150904
  Transmission Date: 20151125
  Serious: Yes (Other)
  Sender: FDA-Public Use
  Company Number: DE-JNJFOC-20150821518

PATIENT

DRUGS (1)
  1. USTEKINUMAB [Suspect]
     Active Substance: USTEKINUMAB
     Indication: PSORIASIS
     Route: 058
     Dates: start: 2014

REACTIONS (8)
  - Nasopharyngitis [Unknown]
  - Arthralgia [Unknown]
  - Adverse event [Unknown]
  - Infestation [Unknown]
  - Headache [Unknown]
  - Diarrhoea [Unknown]
  - Infection [Unknown]
  - Fatigue [Unknown]
